FAERS Safety Report 10696731 (Version 1)
Quarter: 2015Q1

REPORT INFORMATION
  Report Type: Spontaneous
  Country: CN (occurrence: CN)
  Receive Date: 20150108
  Receipt Date: 20150108
  Transmission Date: 20150721
  Serious: Yes (Death, Hospitalization, Other)
  Sender: FDA-Public Use
  Company Number: CN-ROCHE-1517639

PATIENT
  Age: 76 Year
  Sex: Male

DRUGS (1)
  1. CEFTRIAXONE SODIUM. [Suspect]
     Active Substance: CEFTRIAXONE SODIUM
     Indication: ECZEMA
     Route: 041

REACTIONS (6)
  - Drug hypersensitivity [Not Recovered/Not Resolved]
  - Intravascular haemolysis [Fatal]
  - Circulatory collapse [Fatal]
  - Off label use [Unknown]
  - Respiratory failure [Fatal]
  - Overdose [Unknown]
